FAERS Safety Report 8386607-8 (Version None)
Quarter: 2012Q2

REPORT INFORMATION
  Report Type: 
  Country: None (occurrence: None)
  Receive Date: 20120525
  Receipt Date: 20120227
  Transmission Date: 20120825
  Serious: No
  Sender: FDA-Public Use
  Company Number: US-GLAXOSMITHKLINE-A0967672A

PATIENT
  Age: 74 Year
  Sex: Female

DRUGS (5)
  1. ESTROGEN [Concomitant]
     Route: 067
  2. PROTONIX [Concomitant]
  3. PREDNISONE [Concomitant]
  4. VERAMYST [Suspect]
     Indication: UPPER-AIRWAY COUGH SYNDROME
     Dosage: 2PUFF PER DAY
     Route: 045
     Dates: start: 20100701
  5. INDERAL [Concomitant]

REACTIONS (2)
  - PRODUCT QUALITY ISSUE [None]
  - DRUG INEFFECTIVE [None]
